FAERS Safety Report 7930898-1 (Version None)
Quarter: 2011Q4

REPORT INFORMATION
  Report Type: 
  Country: None (occurrence: None)
  Receive Date: 20111121
  Receipt Date: 20111031
  Transmission Date: 20120403
  Serious: Yes (Hospitalization, Other)
  Sender: FDA-Public Use
  Company Number: PHHO2011US09437

PATIENT
  Sex: Male

DRUGS (12)
  1. NEORAL [Suspect]
     Indication: RENAL TRANSPLANT
     Dosage: 175 MG, QD
     Dates: start: 20110218
  2. COUMADIN [Suspect]
  3. ISOSORBIDE MONONITRATE [Concomitant]
  4. PERCOCET [Concomitant]
     Indication: HYPERTENSION
  5. MYCOPHENOLATE MOFETIL [Suspect]
     Dates: start: 20070723
  6. PREDNISONE TAB [Suspect]
     Dosage: 5 MG, UNK
     Dates: start: 20090723
  7. KLOR-CON [Concomitant]
  8. CLONIDINE HYDROCHLORIDE [Concomitant]
  9. LIPITOR [Concomitant]
  10. METOPROLOL SUCCINATE [Concomitant]
  11. HYDRALAZINE HYDROCHLORIDE [Concomitant]
  12. FUROSEMIDE [Concomitant]
     Dates: start: 20110711

REACTIONS (8)
  - CARDIAC FAILURE CONGESTIVE [None]
  - ISCHAEMIC STROKE [None]
  - MUSCLE HAEMORRHAGE [None]
  - PYELONEPHRITIS [None]
  - PNEUMONIA [None]
  - VASCULITIS [None]
  - HAEMATURIA [None]
  - CHEST PAIN [None]
